FAERS Safety Report 10193052 (Version 3)
Quarter: 2014Q4

REPORT INFORMATION
  Report Type: Spontaneous
  Country: DE (occurrence: DE)
  Receive Date: 20140524
  Receipt Date: 20141017
  Transmission Date: 20150528
  Serious: Yes (Other)
  Sender: FDA-Public Use
  Company Number: DE-AMGEN-DEUSP2014037165

PATIENT
  Age: 66 Year
  Sex: Female
  Weight: 86.8 kg

DRUGS (25)
  1. LOSARTAN HORMOSAN COMP [Concomitant]
     Dosage: 100 MG, BID
  2. VENOFER [Concomitant]
     Active Substance: IRON SUCROSE
  3. AMLODIPINE [Concomitant]
     Active Substance: AMLODIPINE BESYLATE
     Dosage: UNK
  4. PROLIA [Suspect]
     Active Substance: DENOSUMAB
     Indication: OSTEOPOROSIS POSTMENOPAUSAL
     Dosage: UNK
     Route: 058
     Dates: start: 201101
  5. LOSARTAN [Concomitant]
     Active Substance: LOSARTAN
     Dosage: UNK
  6. VERAPAMIL 1 A PHARM [Concomitant]
     Dosage: 1 DF, BID
  7. ONE ALPHA [Concomitant]
     Active Substance: ALFACALCIDOL
     Dosage: 1 MUG, BID
  8. VERAPAMIL [Concomitant]
     Active Substance: VERAPAMIL HYDROCHLORIDE
     Dosage: UNK
  9. POLYETHYLENE GLYCOL [Concomitant]
     Active Substance: POLYETHYLENE GLYCOLS
     Dosage: UNK
  10. AMLO TEVA [Concomitant]
     Dosage: 10 MG, QD
  11. EUTHYROX [Concomitant]
     Active Substance: LEVOTHYROXINE SODIUM
     Dosage: 112 MUG, QD
  12. CARBAMAZEPINE. [Concomitant]
     Active Substance: CARBAMAZEPINE
     Dosage: UNK UNK, BID
  13. ACTRAPID [Concomitant]
     Active Substance: INSULIN HUMAN
     Dosage: UNK
  14. PROTAPHANE [Concomitant]
     Active Substance: INSULIN HUMAN
  15. VITAMIN B12 [Concomitant]
     Active Substance: CYANOCOBALAMIN
  16. EPOETIN [Concomitant]
     Active Substance: ERYTHROPOIETIN
     Dosage: UNK
  17. INSULIN [Concomitant]
     Active Substance: INSULIN NOS
     Dosage: UNK
  18. TORASEMID HEXAL PHARMA [Concomitant]
     Dosage: 20 MG (1-1/2), QD
  19. CALCIUM SANDOZ                     /00060701/ [Concomitant]
     Dosage: UNK UNK, BID
  20. LEVOTHYROXINE [Concomitant]
     Active Substance: LEVOTHYROXINE
     Dosage: UNK
  21. EBRANTIL                           /00631801/ [Concomitant]
     Active Substance: URAPIDIL
     Dosage: UNK UNK, BID
  22. DEKRISTOL [Concomitant]
     Active Substance: CHOLECALCIFEROL
  23. MIRCERA [Concomitant]
     Active Substance: PEGZEREPOETIN ALFA
     Dosage: 0.3 ML(50 MUG), UNK
  24. FERRUM                             /00023502/ [Concomitant]
     Dosage: UNK
  25. SUCROSE [Concomitant]
     Active Substance: SUCROSE
     Dosage: UNK

REACTIONS (9)
  - Blood parathyroid hormone increased [Recovered/Resolved]
  - Hypoaesthesia [Unknown]
  - Hypocalcaemia [Recovered/Resolved]
  - Malaise [Unknown]
  - Mental disorder [Recovered/Resolved]
  - Personality change [Unknown]
  - Tetany [Unknown]
  - Depressed mood [Unknown]
  - Muscle spasms [Unknown]

NARRATIVE: CASE EVENT DATE: 201101
